FAERS Safety Report 6157499-2 (Version None)
Quarter: 2009Q2

REPORT INFORMATION
  Report Type: 
  Country: None (occurrence: None)
  Receive Date: 20090416
  Receipt Date: 20090408
  Transmission Date: 20091009
  Serious: Yes (Hospitalization)
  Sender: FDA-Public Use
  Company Number: US-ABBOTT-09P-163-0567137-00

PATIENT
  Sex: Male
  Weight: 93.07 kg

DRUGS (18)
  1. ZEMPLAR [Suspect]
     Indication: HYPERPARATHYROIDISM
     Route: 048
     Dates: start: 20080101
  2. ZEMPLAR [Suspect]
     Route: 042
     Dates: start: 20081001
  3. ZEMPLAR [Suspect]
     Indication: HYPERPARATHYROIDISM
     Dates: start: 20080408
  4. VICODIN [Concomitant]
     Indication: PAIN
     Dosage: 5/550 MG
  5. NEXIUM [Concomitant]
     Indication: GASTRITIS
  6. PLAVIX [Concomitant]
     Indication: CEREBROVASCULAR ACCIDENT
  7. SINGULAIR [Concomitant]
     Indication: HYPERSENSITIVITY
  8. LYRICA [Concomitant]
     Indication: NEUROPATHY PERIPHERAL
  9. NEPHROVITE [Concomitant]
     Indication: VITAMIN SUPPLEMENTATION
  10. TRAZODONE HCL [Concomitant]
     Indication: DEPRESSION
  11. LIPITOR [Concomitant]
     Indication: BLOOD CHOLESTEROL INCREASED
  12. REGLAN [Concomitant]
     Indication: GASTRITIS
  13. LANTUS [Concomitant]
     Indication: DIABETES MELLITUS
  14. INSULIN REGULAR [Concomitant]
     Indication: DIABETES MELLITUS
     Dosage: PER SLIDING SCALE
  15. LEXAPRO [Concomitant]
     Indication: DEPRESSION
  16. SYMBICORT [Concomitant]
     Indication: LUNG DISORDER
     Dosage: 80/4.5 MG
  17. SYMBICORT [Concomitant]
     Indication: PNEUMONIA
  18. EPOGEN [Concomitant]
     Indication: ANAEMIA
     Route: 042

REACTIONS (13)
  - ABDOMINAL MASS [None]
  - ANAEMIA [None]
  - BEDRIDDEN [None]
  - BLOOD CREATININE INCREASED [None]
  - BLOOD UREA INCREASED [None]
  - CEREBROVASCULAR ACCIDENT [None]
  - CHOKING [None]
  - CONFUSIONAL STATE [None]
  - DECUBITUS ULCER [None]
  - HAEMODIALYSIS [None]
  - PNEUMONIA [None]
  - URINARY RETENTION [None]
  - URINARY TRACT INFECTION [None]
